FAERS Safety Report 7075372-2 (Version None)
Quarter: 2010Q4

REPORT INFORMATION
  Report Type: 
  Country: None (occurrence: None)
  Receive Date: 20101030
  Receipt Date: 20101003
  Transmission Date: 20110411
  Serious: No
  Sender: FDA-Public Use
  Company Number: US-WYE-H17161910

PATIENT
  Sex: Female
  Weight: 52.21 kg

DRUGS (6)
  1. PRISTIQ [Suspect]
     Indication: DEPRESSION
     Dates: start: 20100701, end: 20100101
  2. PRISTIQ [Suspect]
     Dates: start: 20100101, end: 20100101
  3. PRISTIQ [Suspect]
     Dates: start: 20100101, end: 20100101
  4. PRISTIQ [Suspect]
     Dosage: ^TAPERED DOWN TO 50 MG DAILY^
     Dates: start: 20100101
  5. ADVIL PM [Suspect]
  6. TYLENOL PM [Concomitant]

REACTIONS (13)
  - ANXIETY [None]
  - DIZZINESS [None]
  - DRUG INEFFECTIVE [None]
  - DRY MOUTH [None]
  - FATIGUE [None]
  - FEELING OF BODY TEMPERATURE CHANGE [None]
  - INSOMNIA [None]
  - MENSTRUATION IRREGULAR [None]
  - PHOTOPHOBIA [None]
  - TACHYPHRENIA [None]
  - TREMOR [None]
  - UNEVALUABLE EVENT [None]
  - VOMITING [None]
